FAERS Safety Report 23932597 (Version 2)
Quarter: 2024Q3

REPORT INFORMATION
  Report Type: Spontaneous
  Country: RU (occurrence: RU)
  Receive Date: 20240603
  Receipt Date: 20240722
  Transmission Date: 20241016
  Serious: Yes (Other)
  Sender: PERRIGO
  Company Number: RU-PERRIGO-24RU004984

PATIENT
  Age: 31 Year
  Sex: Male

DRUGS (1)
  1. MINOXIDIL [Suspect]
     Active Substance: MINOXIDIL
     Indication: Androgenetic alopecia
     Dosage: UNKNOWN, UNKNOWN
     Route: 061

REACTIONS (4)
  - Ocular hypertension [Recovering/Resolving]
  - Diplopia [Unknown]
  - Intraocular pressure increased [Recovering/Resolving]
  - Visual impairment [Unknown]

NARRATIVE: CASE EVENT DATE: 20220201
